FAERS Safety Report 4590381-0 (Version None)
Quarter: 2005Q1

REPORT INFORMATION
  Report Type: 
  Country: None (occurrence: None)
  Receive Date: 20050217
  Receipt Date: 20050202
  Transmission Date: 20050727
  Serious: Yes (Congenital Anomaly, Other)
  Sender: FDA-Public Use
  Company Number: 2005-0007918

PATIENT
  Sex: Female
  Weight: 2.51 kg

DRUGS (3)
  1. VIREAD [Suspect]
     Indication: HIV INFECTION
     Dosage: 300 MG , 1 IN 1 D, ORAL
     Route: 048
     Dates: start: 20040720
  2. EPIVIR [Concomitant]
  3. KALETRA [Concomitant]

REACTIONS (4)
  - CARDIAC MURMUR [None]
  - DRUG EXPOSURE DURING PREGNANCY [None]
  - HEART DISEASE CONGENITAL [None]
  - MICROGLOSSIA [None]
